FAERS Safety Report 7503161-0 (Version None)
Quarter: 2011Q2

REPORT INFORMATION
  Report Type: 
  Country: None (occurrence: None)
  Receive Date: 20110525
  Receipt Date: 20101029
  Transmission Date: 20111010
  Serious: No
  Sender: FDA-Public Use
  Company Number: US-NOVEN-ALL1-2010-05637

PATIENT
  Sex: Male
  Weight: 29.478 kg

DRUGS (2)
  1. DAYTRANA [Suspect]
     Dosage: 10 MG, 1X/DAY:QD
     Route: 062
     Dates: start: 20090101, end: 20101001
  2. DAYTRANA [Suspect]
     Dosage: 20 MG, 1X/DAY:QD  ADMINISTERED AS TWO 10 MG PATCHES
     Route: 062
     Dates: start: 20101001

REACTIONS (3)
  - PRODUCT QUALITY ISSUE [None]
  - TIC [None]
  - INITIAL INSOMNIA [None]
